FAERS Safety Report 6231772-1 (Version None)
Quarter: 2009Q2

REPORT INFORMATION
  Report Type: 
  Country: None (occurrence: None)
  Receive Date: 20090616
  Receipt Date: 20090604
  Transmission Date: 20091009
  Serious: Yes (Hospitalization)
  Sender: FDA-Public Use
  Company Number: PHHY2008MX26062

PATIENT
  Age: 80 Year
  Sex: Female

DRUGS (1)
  1. DIOVAN [Suspect]
     Indication: HYPERTENSION
     Dosage: 1 TABLET (160 MG)/DAY
     Route: 048
     Dates: end: 20090201

REACTIONS (5)
  - BLOOD PRESSURE INCREASED [None]
  - CATARACT [None]
  - CATARACT OPERATION [None]
  - EYE OPERATION [None]
  - OEDEMA PERIPHERAL [None]
